FAERS Safety Report 22116379 (Version 3)
Quarter: 2023Q2

REPORT INFORMATION
  Report Type: Spontaneous
  Country: US (occurrence: US)
  Receive Date: 20230320
  Receipt Date: 20230421
  Transmission Date: 20230721
  Serious: Yes (Other)
  Sender: FDA-Public Use
  Company Number: US-PFIZER INC-PV202300051320

PATIENT
  Age: 74 Year
  Sex: Female
  Weight: 63.96 kg

DRUGS (2)
  1. PREMARIN [Suspect]
     Active Substance: ESTROGENS, CONJUGATED
     Indication: Hormone level abnormal
     Dosage: 1.25 MG
     Dates: start: 2019
  2. PREMARIN [Suspect]
     Active Substance: ESTROGENS, CONJUGATED
     Indication: Menopause
     Dosage: 0.625 MG, 1X/DAY (0.625MG TABLET ONCE A DAY BY MOUTH AT NIGHT)
     Route: 048

REACTIONS (6)
  - Shoulder operation [Unknown]
  - Muscle rupture [Unknown]
  - Ligament rupture [Unknown]
  - Pain [Unknown]
  - Illness [Unknown]
  - Vomiting [Unknown]

NARRATIVE: CASE EVENT DATE: 20230222
